FAERS Safety Report 5964871-X (Version None)
Quarter: 2008Q4

REPORT INFORMATION
  Report Type: 
  Country: None (occurrence: None)
  Receive Date: 20081124
  Receipt Date: 20081124
  Transmission Date: 20090506
  Serious: No
  Sender: FDA-Public Use
  Company Number: None

PATIENT
  Age: 55 Year
  Sex: Female
  Weight: 89.3586 kg

DRUGS (4)
  1. CLONIDINE [Suspect]
     Indication: HYPERTENSION
     Dosage: 1 TAB DAILY PO, 2X AT NITE
     Route: 048
     Dates: start: 20081117, end: 20081118
  2. METOPROLOL [Concomitant]
  3. DIOVAN [Concomitant]
  4. HYDROCHLOROTHIAZIDE [Concomitant]

REACTIONS (2)
  - AMNESIA [None]
  - FEAR [None]
